FAERS Safety Report 5012781-7 (Version None)
Quarter: 2006Q2

REPORT INFORMATION
  Report Type: 
  Country: None (occurrence: None)
  Receive Date: 20060530
  Receipt Date: 20060228
  Transmission Date: 20061013
  Serious: No
  Sender: FDA-Public Use
  Company Number: US-BRISTOL-MYERS SQUIBB COMPANY-13298641

PATIENT
  Age: 72 Year
  Sex: Male
  Weight: 84 kg

DRUGS (12)
  1. ERBITUX [Suspect]
     Indication: COLON CANCER
     Dosage: PT WAS TO RECEIVE 750 MG BUT AFTER 1/2 INFUSION INFUSED, PATIENT EXPERIENCED CHILLS AND BACK PAIN.
     Route: 042
     Dates: start: 20051101, end: 20051101
  2. ATENOLOL [Concomitant]
  3. DURAGESIC-100 [Concomitant]
  4. FLUOROURACIL [Concomitant]
  5. GLYBURIDE [Concomitant]
  6. IRINOTECAN HCL [Concomitant]
  7. LEUCOVORIN [Concomitant]
  8. MARINOL [Concomitant]
  9. METFORMIN HYDROCHLORIDE [Concomitant]
  10. REGLAN [Concomitant]
  11. ROXANOL [Concomitant]
  12. VICODIN [Concomitant]

REACTIONS (2)
  - BACK PAIN [None]
  - CHILLS [None]
